FAERS Safety Report 21899071 (Version 1)
Quarter: 2023Q1

REPORT INFORMATION
  Report Type: Spontaneous
  Country: BE (occurrence: BE)
  Receive Date: 20230123
  Receipt Date: 20230123
  Transmission Date: 20230417
  Serious: Yes (Other)
  Sender: FDA-Public Use
  Company Number: None

PATIENT
  Sex: Female
  Weight: 87 kg

DRUGS (1)
  1. TRAMADOL HYDROCHLORIDE [Suspect]
     Active Substance: TRAMADOL HYDROCHLORIDE
     Indication: Product used for unknown indication
     Dosage: UNK
     Route: 065

REACTIONS (4)
  - Crying [Unknown]
  - Near death experience [Unknown]
  - Screaming [Unknown]
  - Anxiety [Unknown]

NARRATIVE: CASE EVENT DATE: 20161130
